FAERS Safety Report 4732575-7 (Version None)
Quarter: 2005Q3

REPORT INFORMATION
  Report Type: 
  Country: None (occurrence: None)
  Receive Date: 20050801
  Receipt Date: 20050719
  Transmission Date: 20060218
  Serious: Yes (Other)
  Sender: FDA-Public Use
  Company Number: 2005104304

PATIENT
  Sex: Male

DRUGS (10)
  1. VIRACEPT [Suspect]
     Indication: HIV INFECTION
     Dosage: 2500 MG (625 MG, BID INTERVAL:  EVERY DAY), PARENTERAL
     Route: 051
     Dates: start: 20050101
  2. RIFAMPICIN [Suspect]
     Indication: ILL-DEFINED DISORDER
  3. ETHAMBUTOL (ETHAMBUTOL) [Concomitant]
  4. RETROVIR [Concomitant]
  5. VIREAD [Concomitant]
  6. AVELOX [Concomitant]
  7. ZITHROMAX [Concomitant]
  8. SEPTRA [Concomitant]
  9. KYTRIL [Concomitant]
  10. REGLAN [Concomitant]

REACTIONS (5)
  - DRUG INTERACTION [None]
  - DRUG INTOLERANCE [None]
  - GASTROENTERITIS [None]
  - WEIGHT DECREASED [None]
  - WEIGHT INCREASED [None]
